FAERS Safety Report 8141960-5 (Version None)
Quarter: 2012Q1

REPORT INFORMATION
  Report Type: 
  Country: None (occurrence: None)
  Receive Date: 20120216
  Receipt Date: 20120213
  Transmission Date: 20120608
  Serious: Yes (Other)
  Sender: FDA-Public Use
  Company Number: ES-GLAXOSMITHKLINE-B0781721A

PATIENT
  Age: 33 Year
  Sex: Female

DRUGS (6)
  1. TROBALT [Suspect]
     Indication: PARTIAL SEIZURES
     Dosage: 300MG PER DAY
     Route: 048
     Dates: start: 20120109
  2. TROBALT [Suspect]
     Dosage: 600MG PER DAY
     Route: 048
     Dates: start: 20120101, end: 20120209
  3. ESLICARBAZEPINE ACETATE [Concomitant]
     Indication: PARTIAL SEIZURES
     Route: 048
  4. PHENOBARBITAL TAB [Concomitant]
     Indication: PARTIAL SEIZURES
     Route: 048
  5. VIMPAT [Concomitant]
     Indication: PARTIAL SEIZURES
     Route: 048
  6. TROBALT [Suspect]
     Route: 048
     Dates: start: 20120209

REACTIONS (6)
  - MALAISE [None]
  - SPEECH DISORDER [None]
  - CONFUSIONAL STATE [None]
  - SOMNOLENCE [None]
  - SEIZURE CLUSTER [None]
  - MENTAL IMPAIRMENT [None]
